FAERS Safety Report 12782132 (Version 1)
Quarter: 2016Q3

REPORT INFORMATION
  Report Type: Spontaneous
  Country: US (occurrence: US)
  Receive Date: 20160923
  Receipt Date: 20160923
  Transmission Date: 20161109
  Serious: No
  Sender: FDA-Public Use
  Company Number: None

PATIENT
  Age: 66 Year
  Sex: Male
  Weight: 86.18 kg

DRUGS (1)
  1. MIRVASO [Suspect]
     Active Substance: BRIMONIDINE TARTRATE
     Indication: ROSACEA
     Dosage: MIRVAGO TOPICAL GEL 0.33% - ON SKIN - ONCE A DAY
     Route: 061
     Dates: start: 20160401, end: 20160913

REACTIONS (7)
  - Wound secretion [None]
  - Skin exfoliation [None]
  - Dry skin [None]
  - Pruritus [None]
  - Paraesthesia [None]
  - Rash [None]
  - Feeling hot [None]

NARRATIVE: CASE EVENT DATE: 20160805
